FAERS Safety Report 15037034 (Version 2)
Quarter: 2018Q2

REPORT INFORMATION
  Report Type: Report from Study
  Country: None (occurrence: RO)
  Receive Date: 20180620
  Receipt Date: 20180626
  Transmission Date: 20180711
  Serious: Yes (Hospitalization)
  Sender: FDA-Public Use
  Company Number: RO-ABBVIE-18K-135-2387206-00

PATIENT
  Age: 80 Year
  Sex: Male

DRUGS (1)
  1. DUODOPA [Suspect]
     Active Substance: CARBIDOPA\LEVODOPA
     Indication: PARKINSON^S DISEASE
     Dosage: DM=12.00??DC=3.00??ED=1.50??NRED=0;??DMN=0.00??DCN=0.00??EDN=0.00??NREDN=0
     Route: 050
     Dates: start: 20160120

REACTIONS (6)
  - Weight decreased [Not Recovered/Not Resolved]
  - Gait inability [Not Recovered/Not Resolved]
  - Decubitus ulcer [Not Recovered/Not Resolved]
  - Somnolence [Not Recovered/Not Resolved]
  - Dysphagia [Not Recovered/Not Resolved]
  - General physical health deterioration [Not Recovered/Not Resolved]

NARRATIVE: CASE EVENT DATE: 201805
